FAERS Safety Report 13713466 (Version 1)
Quarter: 2017Q3

REPORT INFORMATION
  Report Type: Spontaneous
  Country: US (occurrence: US)
  Receive Date: 20170704
  Receipt Date: 20170704
  Transmission Date: 20171127
  Serious: No
  Sender: FDA-Public Use
  Company Number: US-ALKABELLO-2017AA002114

PATIENT
  Age: 47 Year
  Sex: Female

DRUGS (1)
  1. TAE BULK UNSPECIFIED [Suspect]
     Active Substance: ALLERGENIC EXTRACTS
     Dates: start: 2014, end: 2014

REACTIONS (3)
  - Lip exfoliation [Not Recovered/Not Resolved]
  - Lip dry [Not Recovered/Not Resolved]
  - Cheilitis [Not Recovered/Not Resolved]

NARRATIVE: CASE EVENT DATE: 2014
